FAERS Safety Report 7596794-7 (Version None)
Quarter: 2011Q3

REPORT INFORMATION
  Report Type: 
  Country: None (occurrence: None)
  Receive Date: 20110708
  Receipt Date: 20110707
  Transmission Date: 20111222
  Serious: Yes (Hospitalization)
  Sender: FDA-Public Use
  Company Number: JP-B.I. PHARMACEUTICALS,INC./RIDGEFIELD-2011-BP-17009NB

PATIENT
  Age: 75 Year
  Sex: Female

DRUGS (2)
  1. DIART [Concomitant]
     Route: 048
  2. PRADAXA [Suspect]
     Indication: ATRIAL FIBRILLATION
     Dosage: 220 MG
     Route: 048
     Dates: start: 20110318, end: 20110706

REACTIONS (2)
  - COLITIS ISCHAEMIC [None]
  - OEDEMA [None]
